FAERS Safety Report 9840195 (Version 6)
Quarter: 2014Q1

REPORT INFORMATION
  Report Type: Report from Study
  Country: CA (occurrence: CA)
  Receive Date: 20140124
  Receipt Date: 20140319
  Transmission Date: 20141002
  Serious: Yes (Hospitalization, Other)
  Sender: FDA-Public Use
  Company Number: CA-ROCHE-1332296

PATIENT
  Age: 42 Year
  Sex: Female

DRUGS (10)
  1. KADCYLA [Suspect]
     Indication: BREAST CANCER METASTATIC
     Route: 042
     Dates: start: 20131202
  2. HERCEPTIN [Suspect]
     Indication: BREAST CANCER
     Route: 042
     Dates: start: 20110701, end: 20121023
  3. XELODA [Suspect]
     Indication: BREAST CANCER
     Route: 048
     Dates: start: 201301, end: 201309
  4. MORPHINE [Suspect]
     Indication: PAIN
     Route: 065
  5. ASA [Concomitant]
     Route: 065
     Dates: start: 201304
  6. PANTOLOC [Concomitant]
     Route: 065
     Dates: start: 2012
  7. ATIVAN [Concomitant]
     Route: 065
     Dates: start: 2012
  8. IMOVANE [Concomitant]
     Route: 065
     Dates: start: 2011
  9. TYKERB [Concomitant]
     Route: 065
     Dates: start: 201301, end: 201309
  10. CIPROFLOXACIN [Concomitant]

REACTIONS (19)
  - Body temperature increased [Not Recovered/Not Resolved]
  - Blood pressure increased [Recovering/Resolving]
  - Heart rate increased [Recovering/Resolving]
  - Platelet count decreased [Not Recovered/Not Resolved]
  - Dizziness [Not Recovered/Not Resolved]
  - Nasal congestion [Not Recovered/Not Resolved]
  - Rhinorrhoea [Not Recovered/Not Resolved]
  - Nasopharyngitis [Not Recovered/Not Resolved]
  - Sleep disorder [Not Recovered/Not Resolved]
  - Abdominal pain [Not Recovered/Not Resolved]
  - Constipation [Not Recovered/Not Resolved]
  - Cough [Recovering/Resolving]
  - Fatigue [Unknown]
  - Nausea [Unknown]
  - Abdominal distension [Not Recovered/Not Resolved]
  - Abdominal discomfort [Not Recovered/Not Resolved]
  - Back pain [Not Recovered/Not Resolved]
  - Drug ineffective [Unknown]
  - Disease progression [Not Recovered/Not Resolved]
